FAERS Safety Report 18742483 (Version 2)
Quarter: 2021Q1

REPORT INFORMATION
  Report Type: Spontaneous
  Country: US (occurrence: US)
  Receive Date: 20210114
  Receipt Date: 20210210
  Transmission Date: 20210419
  Serious: Yes (Other)
  Sender: FDA-Public Use
  Company Number: US-TEVA-2021-US-1867300

PATIENT
  Age: 75 Year
  Sex: Female

DRUGS (3)
  1. CANNABIDIOL OIL [Suspect]
     Active Substance: CANNABIDIOL
     Indication: BACK PAIN
     Dosage: SHE HAD BEEN RECEIVING CANNABIDIOL OIL CHRONICALLY?CANNABIDIOL OIL
     Route: 048
  2. LOPERAMIDE [Suspect]
     Active Substance: LOPERAMIDE
     Indication: DIARRHOEA
     Route: 065
  3. PEPTO?BISMOL [Suspect]
     Active Substance: BISMUTH SUBSALICYLATE
     Indication: DIARRHOEA
     Route: 065

REACTIONS (3)
  - Off label use [Unknown]
  - Colitis microscopic [Recovered/Resolved]
  - Drug ineffective [Unknown]
